FAERS Safety Report 6724847-1 (Version None)
Quarter: 2010Q2

REPORT INFORMATION
  Report Type: 
  Country: None (occurrence: None)
  Receive Date: 20100513
  Receipt Date: 20100513
  Transmission Date: 20101027
  Serious: Yes (Life-Threatening, Other)
  Sender: FDA-Public Use
  Company Number: None

PATIENT
  Age: 7 Year
  Sex: Male
  Weight: 28.123 kg

DRUGS (2)
  1. SULFAMETHOXAZOLE [Suspect]
     Indication: SKIN INFECTION
     Dosage: 2 1/2 TSP 2X'S DAY FOR 10 DAYS ORAL
     Route: 048
     Dates: start: 20100411, end: 20100418
  2. BENADRYL [Concomitant]

REACTIONS (6)
  - BLOOD URINE PRESENT [None]
  - BRONCHITIS [None]
  - CRYSTAL URINE [None]
  - DRUG HYPERSENSITIVITY [None]
  - EAR PAIN [None]
  - OROPHARYNGEAL PAIN [None]
